FAERS Safety Report 22064323 (Version 1)
Quarter: 2023Q1

REPORT INFORMATION
  Report Type: Report from Study
  Country: US (occurrence: US)
  Receive Date: 20230306
  Receipt Date: 20230306
  Transmission Date: 20230417
  Serious: Yes (Hospitalization, Other)
  Sender: FDA-Public Use
  Company Number: US-ABBVIE-4327486

PATIENT
  Age: 70 Year
  Sex: Male
  Weight: 95.708 kg

DRUGS (4)
  1. HUMIRA [Suspect]
     Active Substance: ADALIMUMAB
     Indication: Colitis ulcerative
     Route: 058
     Dates: start: 20130319
  2. AZATHIOPRINE [Suspect]
     Active Substance: AZATHIOPRINE
     Indication: Colitis ulcerative
     Route: 048
     Dates: start: 20140819
  3. KLONOPIN [Concomitant]
     Active Substance: CLONAZEPAM
     Indication: Anxiety
     Route: 048
     Dates: start: 201502
  4. IBUPROFEN [Concomitant]
     Active Substance: IBUPROFEN
     Indication: Osteoarthritis
     Route: 048
     Dates: start: 2000

REACTIONS (1)
  - Osteoarthritis [Not Recovered/Not Resolved]

NARRATIVE: CASE EVENT DATE: 20230104
